FAERS Safety Report 8444392-5 (Version None)
Quarter: 2012Q2

REPORT INFORMATION
  Report Type: 
  Country: None (occurrence: None)
  Receive Date: 20120618
  Receipt Date: 20120601
  Transmission Date: 20120825
  Serious: Yes (Life-Threatening)
  Sender: FDA-Public Use
  Company Number: LV-TEVA-341001ISR

PATIENT
  Sex: Female
  Weight: 70 kg

DRUGS (2)
  1. BISOPROLOL FUMARATE [Concomitant]
     Route: 048
  2. CARBOPLATIN [Suspect]
     Route: 042
     Dates: start: 20120525

REACTIONS (7)
  - DIZZINESS [None]
  - HYPOTENSION [None]
  - TACHYCARDIA [None]
  - CHEST PAIN [None]
  - ANXIETY [None]
  - ERYTHEMA [None]
  - DYSPNOEA [None]
